FAERS Safety Report 25471323 (Version 2)
Quarter: 2025Q3

REPORT INFORMATION
  Report Type: Report from Study
  Country: US (occurrence: US)
  Receive Date: 20250624
  Receipt Date: 20250915
  Transmission Date: 20251021
  Serious: Yes (Other)
  Sender: ABBVIE
  Company Number: US-ABBVIE-6338628

PATIENT
  Age: 69 Year
  Sex: Male
  Weight: 55 kg

DRUGS (1)
  1. CREON [Suspect]
     Active Substance: PANCRELIPASE AMYLASE\PANCRELIPASE LIPASE\PANCRELIPASE PROTEASE
     Indication: Product used for unknown indication
     Route: 048
     Dates: start: 20250222

REACTIONS (2)
  - Pancreatic carcinoma [Unknown]
  - Alopecia [Unknown]

NARRATIVE: CASE EVENT DATE: 20250101
